FAERS Safety Report 6431011-2 (Version None)
Quarter: 2009Q4

REPORT INFORMATION
  Report Type: 
  Country: None (occurrence: None)
  Receive Date: 20091106
  Receipt Date: 20091029
  Transmission Date: 20100525
  Serious: Yes (Other)
  Sender: FDA-Public Use
  Company Number: GR-ABBOTT-09P-066-0603512-00

PATIENT
  Sex: Female

DRUGS (3)
  1. DEPAKINE CHRONOSPHERE [Suspect]
     Indication: CONVULSION
     Route: 048
     Dates: start: 20090101, end: 20090101
  2. DEPAKINE CHRONOSPHERE [Suspect]
     Dosage: 750 MG DAILY
     Dates: start: 20090101
  3. VALPROATE SODIUM [Concomitant]
     Indication: CONVULSION
     Route: 048

REACTIONS (3)
  - CONVULSION [None]
  - DRUG LEVEL DECREASED [None]
  - PRODUCT SUBSTITUTION ISSUE [None]
